FAERS Safety Report 10766301 (Version 2)
Quarter: 2015Q1

REPORT INFORMATION
  Report Type: Spontaneous
  Country: GR (occurrence: GR)
  Receive Date: 20150205
  Receipt Date: 20150213
  Transmission Date: 20150721
  Serious: Yes (Other)
  Sender: FDA-Public Use
  Company Number: GR-PFIZER INC-2015047871

PATIENT
  Age: 78 Year
  Sex: Male

DRUGS (4)
  1. MIKTOSAN [Concomitant]
     Indication: DYSURIA
     Dosage: UNK
     Route: 048
  2. LAPRAZOL [Concomitant]
     Indication: PROPHYLAXIS
     Dosage: UNK
     Route: 048
     Dates: start: 2013
  3. LIPITOR [Suspect]
     Active Substance: ATORVASTATIN CALCIUM
     Indication: HYPERCHOLESTEROLAEMIA
     Dosage: 10 MG, UNK
     Route: 048
  4. T4 [Concomitant]
     Active Substance: LEVOTHYROXINE
     Indication: HYPOTHYROIDISM
     Dosage: 88 ?G, UNK
     Route: 048

REACTIONS (2)
  - Back disorder [Not Recovered/Not Resolved]
  - Pain [Unknown]
